FAERS Safety Report 9683928 (Version 2)
Quarter: 2013Q4

REPORT INFORMATION
  Report Type: Spontaneous
  Country: US (occurrence: US)
  Receive Date: 20131112
  Receipt Date: 20131112
  Transmission Date: 20140711
  Serious: No
  Sender: FDA-Public Use
  Company Number: US-MALLINCKRODT-T201304379

PATIENT
  Age: 51 Year
  Sex: Male
  Weight: 72.56 kg

DRUGS (1)
  1. FENTANYL TRANSDERMAL SYSTEM [Suspect]
     Indication: PAIN
     Dosage: 100 UG/HR, 2 FTS Q 48 HRS
     Route: 062
     Dates: start: 2010

REACTIONS (5)
  - Affect lability [Recovering/Resolving]
  - Nightmare [Not Recovered/Not Resolved]
  - Feeling abnormal [Recovered/Resolved]
  - Incorrect drug administration duration [Recovered/Resolved]
  - Drug effect decreased [Not Recovered/Not Resolved]
